FAERS Safety Report 6081522-7 (Version None)
Quarter: 2009Q1

REPORT INFORMATION
  Report Type: 
  Country: None (occurrence: None)
  Receive Date: 20090213
  Receipt Date: 20090204
  Transmission Date: 20090719
  Serious: Yes (Other)
  Sender: FDA-Public Use
  Company Number: 2009AP000451

PATIENT
  Age: 60 Year
  Sex: Female

DRUGS (2)
  1. CEFUROXIME AXETIL [Suspect]
     Indication: UPPER RESPIRATORY TRACT INFECTION
     Dosage: 500 MG; BID; PO
     Route: 048
     Dates: start: 20090202, end: 20090204
  2. METOPROLOL SUCCINATE [Concomitant]

REACTIONS (5)
  - BLOOD PRESSURE INCREASED [None]
  - DYSPEPSIA [None]
  - HEART RATE INCREASED [None]
  - OESOPHAGEAL PAIN [None]
  - ORAL DISCOMFORT [None]
